FAERS Safety Report 6444288-4 (Version None)
Quarter: 2009Q4

REPORT INFORMATION
  Report Type: 
  Country: None (occurrence: None)
  Receive Date: 20091118
  Receipt Date: 20090416
  Transmission Date: 20100525
  Serious: Yes (Other)
  Sender: FDA-Public Use
  Company Number: PHHY2009DE14609

PATIENT
  Sex: Male

DRUGS (6)
  1. ZOMETA [Suspect]
     Indication: PROSTATE CANCER METASTATIC
     Dosage: 4 MG EVERY 4 WEEKS
     Dates: start: 20090201
  2. ZOMETA [Suspect]
     Dosage: 4 MG EVERY 4 WEEKS
     Dates: start: 20090301
  3. DICLOFENAC [Suspect]
     Indication: METASTATIC PAIN
     Dosage: UNK
     Route: 048
     Dates: start: 20090301
  4. CORTISONE [Concomitant]
     Indication: ASTHMA
     Route: 048
  5. HYPNOTICS AND SEDATIVES [Concomitant]
     Route: 048
  6. VIANI [Concomitant]
     Indication: ASTHMA

REACTIONS (2)
  - ASTHMA [None]
  - DYSPNOEA [None]
